FAERS Safety Report 5993605-8 (Version None)
Quarter: 2008Q4

REPORT INFORMATION
  Report Type: 
  Country: None (occurrence: None)
  Receive Date: 20081212
  Receipt Date: 20081205
  Transmission Date: 20090506
  Serious: Yes (Hospitalization)
  Sender: FDA-Public Use
  Company Number: PHHY2008GB31055

PATIENT
  Age: 47 Year
  Sex: Female
  Weight: 57 kg

DRUGS (3)
  1. DICLOFENAC SODIUM [Suspect]
  2. AMITRIPTYLINE HCL [Concomitant]
  3. OMEPRAZOLE [Concomitant]

REACTIONS (4)
  - ACUTE CORONARY SYNDROME [None]
  - CHEST PAIN [None]
  - HAEMATEMESIS [None]
  - UPPER GASTROINTESTINAL HAEMORRHAGE [None]
